FAERS Safety Report 24594568 (Version 1)
Quarter: 2024Q4

REPORT INFORMATION
  Report Type: Spontaneous
  Country: US (occurrence: None)
  Receive Date: 20241108
  Receipt Date: 20241108
  Transmission Date: 20250115
  Serious: Yes (Other)
  Sender: Public
  Company Number: None

PATIENT
  Age: 54 Year
  Sex: Female
  Weight: 86.18 kg

DRUGS (11)
  1. XOLAIR [Suspect]
     Active Substance: OMALIZUMAB
     Indication: Urticaria
     Route: 058
     Dates: start: 20240430
  2. Crestor 40mg [Concomitant]
  3. Fish Oil 1000mg [Concomitant]
  4. VITAMINS [Concomitant]
     Active Substance: VITAMINS
  5. Vitamin D 2,000 unit [Concomitant]
  6. NURTEC 75MG [Concomitant]
  7. QUVIVIQ [Concomitant]
     Active Substance: DARIDOREXANT
  8. ALPRAZOLAM [Concomitant]
     Active Substance: ALPRAZOLAM
  9. GABAPENTIN [Concomitant]
     Active Substance: GABAPENTIN
  10. FLUTICASONE [Concomitant]
     Active Substance: FLUTICASONE
  11. NARATRIPTAN HYDROCHLORIDE [Concomitant]
     Active Substance: NARATRIPTAN HYDROCHLORIDE

REACTIONS (1)
  - Malignant melanoma [None]

NARRATIVE: CASE EVENT DATE: 20241031
